FAERS Safety Report 19306764 (Version 3)
Quarter: 2021Q3

REPORT INFORMATION
  Report Type: Spontaneous
  Country: US (occurrence: US)
  Receive Date: 20210526
  Receipt Date: 20210726
  Transmission Date: 20211014
  Serious: Yes (Hospitalization, Other)
  Sender: FDA-Public Use
  Company Number: US-SUN PHARMACEUTICAL INDUSTRIES LTD-2021R1-298184

PATIENT
  Sex: Female
  Weight: 72.56 kg

DRUGS (2)
  1. EPOPROSTENOL. [Suspect]
     Active Substance: EPOPROSTENOL
     Dosage: 43 NG/KG/MIN, CONTINUOUS
     Route: 042
     Dates: start: 20210414
  2. EPOPROSTENOL. [Suspect]
     Active Substance: EPOPROSTENOL
     Indication: PULMONARY ARTERIAL HYPERTENSION
     Dosage: 37 NG/KG/MIN, CONTINUOUS
     Route: 042
     Dates: start: 20210414

REACTIONS (6)
  - Malaise [Unknown]
  - Catheter site haemorrhage [Unknown]
  - Complication associated with device [Unknown]
  - Flushing [Unknown]
  - Fluid retention [Unknown]
  - Asthenia [Unknown]
